FAERS Safety Report 19868606 (Version 1)
Quarter: 2021Q3

REPORT INFORMATION
  Report Type: Spontaneous
  Country: US (occurrence: US)
  Receive Date: 20210921
  Receipt Date: 20210921
  Transmission Date: 20211014
  Serious: No
  Sender: FDA-Public Use
  Company Number: US-AMGEN-USASP2021143630

PATIENT
  Age: 76 Year
  Sex: Male

DRUGS (4)
  1. APREMILAST [Suspect]
     Active Substance: APREMILAST
     Indication: DERMATITIS HERPETIFORMIS
     Dosage: UNK
     Route: 065
  2. APREMILAST [Suspect]
     Active Substance: APREMILAST
     Indication: OFF LABEL USE
  3. SULFASALAZINE. [Concomitant]
     Active Substance: SULFASALAZINE
  4. TOFACITINIB [Concomitant]
     Active Substance: TOFACITINIB
     Indication: DERMATITIS HERPETIFORMIS
     Dosage: 5 MILLIGRAM, BID
     Route: 065

REACTIONS (2)
  - Off label use [Unknown]
  - Drug ineffective for unapproved indication [Unknown]
